FAERS Safety Report 4393293-0 (Version None)
Quarter: 2004Q3

REPORT INFORMATION
  Report Type: 
  Country: None (occurrence: None)
  Receive Date: 20040701
  Receipt Date: 20040617
  Transmission Date: 20050211
  Serious: Yes (Other)
  Sender: FDA-Public Use
  Company Number: 2004-DE-03338GD

PATIENT
  Age: 68 Year
  Sex: Male

DRUGS (6)
  1. CYCLOPHOSPHAMIDE [Suspect]
     Indication: HAEMORRHAGE
     Dosage: 150 MG
  2. CYCLOPHOSPHAMIDE [Suspect]
     Indication: PULMONARY VASCULITIS
     Dosage: 150 MG
  3. MORPHINE [Concomitant]
  4. METHYLPREDNISOLONE (METHYLPRENDISOLONE) [Concomitant]
  5. PANCURONIUM (PANCURONIUM) [Concomitant]
  6. MIDAZOLAM (MIDAZOLAM) [Concomitant]

REACTIONS (10)
  - ANAEMIA [None]
  - ANTI-NEUTROPHIL CYTOPLASMIC ANTIBODY POSITIVE VASCULITIS [None]
  - ASPIRATION TRACHEAL [None]
  - HAEMODIALYSIS [None]
  - HAEMOPTYSIS [None]
  - HYPOXIA [None]
  - OLIGURIA [None]
  - OXYGEN SATURATION DECREASED [None]
  - PCO2 INCREASED [None]
  - RESPIRATORY GAS EXCHANGE DISORDER [None]
